FAERS Safety Report 11449559 (Version 2)
Quarter: 2015Q4

REPORT INFORMATION
  Report Type: Spontaneous
  Country: US (occurrence: US)
  Receive Date: 20150903
  Receipt Date: 20151120
  Transmission Date: 20160304
  Serious: Yes (Hospitalization)
  Sender: FDA-Public Use
  Company Number: PHEH2015US016858

PATIENT
  Age: 31 Year
  Sex: Male

DRUGS (3)
  1. TOBI PODHALER [Suspect]
     Active Substance: TOBRAMYCIN
     Indication: CYSTIC FIBROSIS
     Dosage: 28 MG, BID
     Route: 055
     Dates: start: 20150521
  2. TOBI PODHALER [Suspect]
     Active Substance: TOBRAMYCIN
     Dosage: 4 DF(IINHAL THE CONTENTS OF 4 CAPSULES), BID
     Route: 055
     Dates: start: 20150817
  3. PULMOZYME [Suspect]
     Active Substance: DORNASE ALFA
     Indication: PRODUCT USED FOR UNKNOWN INDICATION
     Dosage: UNK,  QD (2.5 MG/2.5 ML)
     Route: 055
     Dates: start: 20150423

REACTIONS (2)
  - Disease complication [Unknown]
  - Cystic fibrosis [Unknown]

NARRATIVE: CASE EVENT DATE: 20150821
